FAERS Safety Report 15152723 (Version 1)
Quarter: 2018Q3

REPORT INFORMATION
  Report Type: Other
  Country: RU (occurrence: RU)
  Receive Date: 20180717
  Receipt Date: 20180717
  Transmission Date: 20181010
  Serious: No
  Sender: FDA-Public Use
  Company Number: RU-LUPIN PHARMACEUTICALS INC.-2018-03678

PATIENT
  Age: 38 Year
  Sex: Female
  Weight: 51 kg

DRUGS (6)
  1. ETHAMBUTOL [Concomitant]
     Active Substance: ETHAMBUTOL HYDROCHLORIDE
     Indication: PULMONARY TUBERCULOMA
     Dosage: UNK
     Route: 048
     Dates: start: 20130606
  2. TERIZIDONE [Concomitant]
     Active Substance: TERIZIDONE
     Indication: PULMONARY TUBERCULOMA
     Dosage: UNK
     Route: 048
     Dates: start: 20130606
  3. RIFABUTIN. [Suspect]
     Active Substance: RIFABUTIN
     Indication: PULMONARY TUBERCULOMA
     Dosage: 450 MG, QD
     Route: 048
     Dates: start: 20130606, end: 20130708
  4. PROTHIONAMIDE [Concomitant]
     Active Substance: PROTIONAMIDE
     Indication: PULMONARY TUBERCULOMA
     Dosage: UNK
     Route: 048
     Dates: start: 20130606
  5. LEVOFLOXACIN. [Concomitant]
     Active Substance: LEVOFLOXACIN
     Indication: PULMONARY TUBERCULOMA
     Dosage: UNK
     Route: 048
     Dates: start: 20130606
  6. PASK [Concomitant]
     Active Substance: AMINOSALICYLATE SODIUM
     Indication: PULMONARY TUBERCULOMA
     Dosage: UNK
     Route: 048
     Dates: start: 20130606

REACTIONS (2)
  - Rash pustular [Recovering/Resolving]
  - Diarrhoea [Recovering/Resolving]

NARRATIVE: CASE EVENT DATE: 20130704
